FAERS Safety Report 4451788-5 (Version None)
Quarter: 2004Q3

REPORT INFORMATION
  Report Type: 
  Country: None (occurrence: None)
  Receive Date: 20040813
  Receipt Date: 20040611
  Transmission Date: 20050211
  Serious: Yes (Other)
  Sender: FDA-Public Use
  Company Number: S04-USA-03151-01

PATIENT
  Age: 86 Year
  Sex: Male

DRUGS (9)
  1. NAMENDA [Suspect]
     Indication: AMNESIA
     Dosage: 5 MG QD PO
     Route: 048
  2. NAMENDA [Suspect]
     Indication: AMNESIA
     Dosage: 20 MG QD PO
     Route: 048
  3. NAMENDA [Suspect]
     Indication: AMNESIA
     Dosage: 10 MG QD PO
     Route: 048
     Dates: end: 20040607
  4. NAMENDA [Suspect]
     Indication: AMNESIA
     Dosage: 5 MG QD PO
     Route: 048
     Dates: start: 20040401
  5. NAMENDA [Suspect]
     Indication: AMNESIA
     Dosage: 10 MG QD PO
     Route: 048
  6. NAMENDA [Suspect]
     Indication: AMNESIA
     Dosage: 15 MG QD PO
     Route: 048
  7. EXELON [Concomitant]
  8. WARFARIN SODIUM [Concomitant]
  9. CHOLESTEROL MEDICATION (NOS) [Concomitant]

REACTIONS (3)
  - DEAFNESS [None]
  - DIZZINESS [None]
  - TINNITUS [None]
